FAERS Safety Report 16451318 (Version 4)
Quarter: 2019Q3

REPORT INFORMATION
  Report Type: Spontaneous
  Country: US (occurrence: US)
  Receive Date: 20190619
  Receipt Date: 20190909
  Transmission Date: 20191004
  Serious: No
  Sender: FDA-Public Use
  Company Number: US-PFIZER INC-2019261466

PATIENT
  Age: 83 Year
  Sex: Female
  Weight: 67 kg

DRUGS (13)
  1. IBRANCE [Suspect]
     Active Substance: PALBOCICLIB
     Indication: BREAST CANCER METASTATIC
     Dosage: 75 MG, CYCLIC (EVERY NIGHT AT 6:00, 21 DAYS ON AND 7 DAYS OFF)
     Dates: start: 201711
  2. IRON [Concomitant]
     Active Substance: IRON
     Dosage: 65 MG, 1X/DAY
     Dates: start: 2018
  3. PRESERVISION AREDS 2 [Concomitant]
     Active Substance: MINERALS\VITAMINS
     Indication: VITAMIN SUPPLEMENTATION
     Dosage: 2 DF, DAILY (2 CAPSULES BY MOUTH)
     Route: 048
     Dates: start: 2016
  4. ONE A DAY WOMEN^S [Concomitant]
     Active Substance: MINERALS\VITAMINS
     Dosage: UNK, 1X/DAY (ONCE A DAY (TABLET BY MOUTH ONE A DAY)
     Dates: start: 201711
  5. ZIOPTAN [Concomitant]
     Active Substance: TAFLUPROST
     Indication: OCULAR HYPERTENSION
     Dosage: 1 GTT, 1X/DAY (ONE DROP EACH NIGHT TO RIGHT EYE)
     Route: 047
     Dates: start: 2016
  6. IBRANCE [Suspect]
     Active Substance: PALBOCICLIB
     Dosage: UNK
     Dates: start: 20190326
  7. IBRANCE [Suspect]
     Active Substance: PALBOCICLIB
     Dosage: 2 WEEKS ON / 2 WEEKS OFF
     Dates: start: 20190716
  8. LETROZOLE. [Concomitant]
     Active Substance: LETROZOLE
     Dosage: UNK, 1X/DAY (TAKES AT 9 PM)
     Dates: start: 201711
  9. IBRANCE [Suspect]
     Active Substance: PALBOCICLIB
     Dosage: UNK
     Dates: start: 20190422
  10. IBRANCE [Suspect]
     Active Substance: PALBOCICLIB
     Dosage: 2 WEEKS ON / 2 WEEKS OFF
     Dates: start: 20190604
  11. IRON [Concomitant]
     Active Substance: IRON
     Dosage: UNK, ONCE DAILY (65 MG EQUIVALENT TO 325MG FERROUS SULFATE TABLET BY MOUTH A DAY)
     Route: 048
     Dates: start: 2018
  12. IBRANCE [Suspect]
     Active Substance: PALBOCICLIB
     Dosage: UNK UNK, CYCLIC
     Dates: start: 20190219
  13. NATURE MADE CALCIUM WITH VITAMIN D [Concomitant]
     Indication: SUPPLEMENTATION THERAPY
     Dosage: 500 MG, 2X/DAY
     Route: 048
     Dates: start: 201711

REACTIONS (2)
  - White blood cell count decreased [Recovered/Resolved]
  - Alopecia [Not Recovered/Not Resolved]

NARRATIVE: CASE EVENT DATE: 201712
